FAERS Safety Report 6613400-6 (Version None)
Quarter: 2010Q1

REPORT INFORMATION
  Report Type: 
  Country: None (occurrence: None)
  Receive Date: 20100304
  Receipt Date: 20100222
  Transmission Date: 20100710
  Serious: Yes (Hospitalization)
  Sender: FDA-Public Use
  Company Number: JP-NOVOPROD-303858

PATIENT
  Age: 70 Year
  Sex: Female
  Weight: 50 kg

DRUGS (6)
  1. NOVOLIN R [Suspect]
     Indication: TYPE 2 DIABETES MELLITUS
     Dosage: 12 U, QD
     Route: 058
     Dates: start: 20071101, end: 20080401
  2. AMARYL [Concomitant]
     Dosage: /PO
     Route: 048
  3. GLYCORAN [Concomitant]
     Dosage: /PO
     Route: 048
  4. LIPITOR [Concomitant]
     Dosage: /PO
     Route: 048
  5. ALFAROL [Concomitant]
     Dosage: /PO
     Route: 048
  6. AMLODIPINE [Concomitant]
     Dosage: /PO
     Route: 048

REACTIONS (3)
  - ANTI-INSULIN ANTIBODY POSITIVE [None]
  - DIABETES MELLITUS INADEQUATE CONTROL [None]
  - HYPOGLYCAEMIA [None]
